FAERS Safety Report 7226509-3 (Version None)
Quarter: 2011Q1

REPORT INFORMATION
  Report Type: 
  Country: None (occurrence: None)
  Receive Date: 20110114
  Receipt Date: 20101231
  Transmission Date: 20110831
  Serious: Yes (Other)
  Sender: FDA-Public Use
  Company Number: GB-RANBAXY-2010R1-40665

PATIENT
  Age: 69 Year
  Sex: Male

DRUGS (13)
  1. RAMIPRIL [Suspect]
     Indication: BLOOD PRESSURE INCREASED
     Dosage: 1.25 MG, QD
     Route: 065
  2. ASPIRIN [Suspect]
     Indication: CARDIAC ARREST
     Dosage: 75 MG, QD
     Route: 065
  3. SERETIDE [Concomitant]
     Indication: PRODUCT USED FOR UNKNOWN INDICATION
     Dosage: 500 MG, QD
     Route: 065
  4. OMEPRAZOLE [Concomitant]
     Indication: PRODUCT USED FOR UNKNOWN INDICATION
     Dosage: 20 MG, QD
     Route: 065
  5. QUININE [Concomitant]
     Indication: PRODUCT USED FOR UNKNOWN INDICATION
     Dosage: UNK, QD
     Route: 065
  6. VENTOLIN INHALER 100 MCG PER ACTUATION [Concomitant]
     Indication: PRODUCT USED FOR UNKNOWN INDICATION
     Dosage: UNK
     Route: 065
  7. ISOSORBIDE DINITRATE [Concomitant]
     Indication: PRODUCT USED FOR UNKNOWN INDICATION
     Dosage: 10 MG, UNK
     Route: 065
  8. BISOPROLOL [Suspect]
     Indication: BLOOD PRESSURE INCREASED
     Dosage: 1.25 MG, QD
     Route: 065
  9. STEROIDS [Concomitant]
     Indication: PLEURISY
     Dosage: UNK
     Route: 065
  10. ASPIRIN [Suspect]
     Indication: MYOCARDIAL INFARCTION
  11. MELOXICAM [Suspect]
     Indication: PAIN
     Dosage: 7.5 MG, QD
     Route: 065
     Dates: start: 20100916
  12. ISOSORBIDE DINITRATE [Concomitant]
     Dosage: 20 MG, UNK
     Route: 065
  13. TIOTROPIUM BROMIDE [Concomitant]
     Indication: PRODUCT USED FOR UNKNOWN INDICATION
     Dosage: UNK
     Route: 055

REACTIONS (9)
  - DEPRESSED LEVEL OF CONSCIOUSNESS [None]
  - CONFUSIONAL STATE [None]
  - HALLUCINATION [None]
  - EYE MOVEMENT DISORDER [None]
  - DIARRHOEA [None]
  - DRUG INTERACTION [None]
  - DELIRIUM [None]
  - CHROMATURIA [None]
  - GAIT DISTURBANCE [None]
